FAERS Safety Report 17330849 (Version 1)
Quarter: 2020Q1

REPORT INFORMATION
  Report Type: Spontaneous
  Country: US (occurrence: US)
  Receive Date: 20200128
  Receipt Date: 20200128
  Transmission Date: 20200409
  Serious: Yes (Other)
  Sender: FDA-Public Use
  Company Number: US-PFIZER INC-2020035894

PATIENT
  Age: 6 Year
  Sex: Female

DRUGS (2)
  1. PROPANOLOL HCL [Suspect]
     Active Substance: PROPRANOLOL HYDROCHLORIDE
     Indication: BASEDOW^S DISEASE
     Dosage: UNK
  2. METHIMAZOLE. [Suspect]
     Active Substance: METHIMAZOLE
     Indication: BASEDOW^S DISEASE
     Dosage: UNK

REACTIONS (6)
  - Drug eruption [Unknown]
  - Mechanical urticaria [Unknown]
  - Hyperthyroidism [Unknown]
  - Urticaria [Unknown]
  - Rash erythematous [Unknown]
  - Exophthalmos [Unknown]
